FAERS Safety Report 4534407-9 (Version None)
Quarter: 2004Q4

REPORT INFORMATION
  Report Type: 
  Country: None (occurrence: None)
  Receive Date: 20041222
  Receipt Date: 20040331
  Transmission Date: 20050328
  Serious: No
  Sender: FDA-Public Use
  Company Number: US-BRISTOL-MYERS SQUIBB COMPANY-12548590

PATIENT
  Age: 75 Year
  Sex: Female

DRUGS (3)
  1. CHOLESTYRAMINE+ASPARTAME [Suspect]
     Dates: start: 20030930
  2. ZETIA [Concomitant]
  3. COMBIPATCH [Concomitant]

REACTIONS (2)
  - DYSPHAGIA [None]
  - PHARYNGOLARYNGEAL PAIN [None]
